FAERS Safety Report 4476946-5 (Version None)
Quarter: 2004Q4

REPORT INFORMATION
  Report Type: 
  Country: None (occurrence: None)
  Receive Date: 20041013
  Receipt Date: 20040924
  Transmission Date: 20050328
  Serious: Yes (Hospitalization, Other)
  Sender: FDA-Public Use
  Company Number: EWC040940763

PATIENT
  Age: 60 Year
  Sex: Female

DRUGS (3)
  1. FORSTEO          (TERIPARATIDE) [Suspect]
     Indication: OSTEOPOROSIS
     Dosage: 1 DSG FORM/1 DAY
     Dates: start: 20040601
  2. CALCIUM [Concomitant]
  3. VITAMIN D [Concomitant]

REACTIONS (3)
  - BLOOD ALKALINE PHOSPHATASE INCREASED [None]
  - FALL [None]
  - LUMBAR VERTEBRAL FRACTURE [None]
